FAERS Safety Report 18198844 (Version 2)
Quarter: 2020Q3

REPORT INFORMATION
  Report Type: Spontaneous
  Country: US (occurrence: US)
  Receive Date: 20200826
  Receipt Date: 20200909
  Transmission Date: 20201103
  Serious: Yes (Hospitalization)
  Sender: FDA-Public Use
  Company Number: US-TEVA-2020-US-1818274

PATIENT
  Age: 23 Year
  Sex: Female

DRUGS (3)
  1. MYCOPHENOLATE?MOFETIL [Suspect]
     Active Substance: MYCOPHENOLATE MOFETIL
     Indication: SYSTEMIC LUPUS ERYTHEMATOSUS
     Route: 065
  2. TESTOSTERONE. [Suspect]
     Active Substance: TESTOSTERONE
     Indication: TRANSGENDER HORMONAL THERAPY
     Dosage: 50 MG/ML
     Route: 030
  3. PREDNISONE. [Suspect]
     Active Substance: PREDNISONE
     Indication: RASH
     Dosage: A 5?DAY COURSE OF HIGH?DOSE PREDNISONE
     Route: 065

REACTIONS (3)
  - Ophthalmic vein thrombosis [Recovering/Resolving]
  - Diplopia [Recovering/Resolving]
  - Drug ineffective [Unknown]
